FAERS Safety Report 7153238-7 (Version None)
Quarter: 2010Q4

REPORT INFORMATION
  Report Type: 
  Country: None (occurrence: None)
  Receive Date: 20101213
  Receipt Date: 20101201
  Transmission Date: 20110411
  Serious: Yes (Hospitalization, Other)
  Sender: FDA-Public Use
  Company Number: US-ROCHE-724690

PATIENT
  Sex: Male
  Weight: 77.1 kg

DRUGS (4)
  1. ACCUTANE [Suspect]
     Indication: ACNE
     Route: 065
     Dates: start: 19870101, end: 19910101
  2. ASPIRIN [Concomitant]
  3. TYLENOL (CAPLET) [Concomitant]
  4. ADVIL [Concomitant]

REACTIONS (7)
  - CROHN'S DISEASE [None]
  - GASTROINTESTINAL INJURY [None]
  - ILEAL STENOSIS [None]
  - INFLAMMATORY BOWEL DISEASE [None]
  - NEPHROLITHIASIS [None]
  - SMALL INTESTINAL OBSTRUCTION [None]
  - SUICIDAL IDEATION [None]
